FAERS Safety Report 26053570 (Version 1)
Quarter: 2025Q4

REPORT INFORMATION
  Report Type: Spontaneous
  Country: US (occurrence: None)
  Receive Date: 20251116
  Receipt Date: 20251116
  Transmission Date: 20260117
  Serious: Yes (Disabling, Other)
  Sender: FDA-CTU
  Company Number: None

PATIENT
  Age: 44 Year
  Sex: Female
  Weight: 58.5 kg

DRUGS (4)
  1. ROCEPHIN [Suspect]
     Active Substance: CEFTRIAXONE SODIUM
     Indication: Urinary tract infection
     Dosage: 1 INJECTION DAILY INTRAMUSCULAR
     Route: 030
     Dates: start: 20250321, end: 20250321
  2. Synthroid 25 [Concomitant]
  3. VITAMINS [Concomitant]
     Active Substance: VITAMINS
  4. VITAMIN C [Concomitant]
     Active Substance: ASCORBIC ACID

REACTIONS (7)
  - Injection site pain [None]
  - Injection site swelling [None]
  - Arthropathy [None]
  - Muscular weakness [None]
  - Neuralgia [None]
  - Suspected product contamination [None]
  - Wrong technique in product usage process [None]

NARRATIVE: CASE EVENT DATE: 20250321
